FAERS Safety Report 4894430-1 (Version None)
Quarter: 2006Q1

REPORT INFORMATION
  Report Type: 
  Country: None (occurrence: None)
  Receive Date: 20060127
  Receipt Date: 20060106
  Transmission Date: 20060701
  Serious: Yes (Hospitalization)
  Sender: FDA-Public Use
  Company Number: JP-ROCHE-431561

PATIENT
  Age: 5 Year
  Sex: Male
  Weight: 19 kg

DRUGS (3)
  1. ROCEPHIN [Suspect]
     Indication: MENINGITIS
     Route: 042
     Dates: start: 20051206, end: 20051222
  2. CARBENIN [Concomitant]
     Route: 042
     Dates: start: 20051206, end: 20051222
  3. DECADRON PHOSPHATE [Concomitant]
     Dosage: 06 AND 07 DECEMBER 2005 DOSING FREQUENCY WAS 4 TIMES PER DAY, ON 08 DEC 2005 DOSING FREQUENCY WAS T+
     Route: 042
     Dates: start: 20051206, end: 20051208

REACTIONS (3)
  - CHOLECYSTITIS [None]
  - CHOLELITHIASIS [None]
  - CONSTIPATION [None]
